FAERS Safety Report 10964810 (Version 2)
Quarter: 2015Q2

REPORT INFORMATION
  Report Type: Spontaneous
  Country: US (occurrence: US)
  Receive Date: 20150330
  Receipt Date: 20150406
  Transmission Date: 20150821
  Serious: Yes (Hospitalization, Other)
  Sender: FDA-Public Use
  Company Number: US-ROCHE-1555944

PATIENT
  Sex: Male
  Weight: 90.35 kg

DRUGS (5)
  1. ATORVASTATIN [Concomitant]
     Active Substance: ATORVASTATIN
     Indication: BLOOD CHOLESTEROL INCREASED
     Route: 065
  2. PAXIL (UNITED STATES) [Concomitant]
     Indication: DEPRESSION
     Dosage: NO DOSAGE, FREQUENCY OR ROUTE REPORTED
     Route: 065
  3. TAMIFLU [Suspect]
     Active Substance: OSELTAMIVIR PHOSPHATE
     Indication: INFLUENZA
     Route: 048
     Dates: start: 20141231, end: 20150101
  4. LISINOPRIL. [Concomitant]
     Active Substance: LISINOPRIL
     Indication: HYPERTENSION
     Dosage: NO ROUTE, FREQUENCY OR DOSAGE REPORTED
     Route: 065
  5. KLONOPIN [Suspect]
     Active Substance: CLONAZEPAM
     Indication: ANXIETY
     Dosage: DOSAGE, ROUTE AND FREQUENCY NOT REPORTED
     Route: 065

REACTIONS (8)
  - Malaise [Unknown]
  - Abdominal pain upper [Unknown]
  - Agitation [Unknown]
  - Hallucination [Unknown]
  - Abnormal behaviour [Unknown]
  - Anger [Unknown]
  - Aggression [Unknown]
  - Confusional state [Unknown]
